FAERS Safety Report 9772780 (Version 1)
Quarter: 2013Q4

REPORT INFORMATION
  Report Type: Spontaneous
  Country: US (occurrence: None)
  Receive Date: 20131218
  Receipt Date: 20131218
  Transmission Date: 20140711
  Serious: Yes (Hospitalization)
  Sender: FDA-Public Use
  Company Number: None

PATIENT
  Age: 15 Year
  Sex: Female
  Weight: 49 kg

DRUGS (3)
  1. AZITHROMYCIN [Suspect]
     Indication: MYCOPLASMA INFECTION
     Route: 042
     Dates: start: 20131215, end: 20131216
  2. CEFOTAXIME [Concomitant]
  3. VANCOMCYIN [Concomitant]

REACTIONS (2)
  - Extrasystoles [None]
  - Ventricular tachycardia [None]
